FAERS Safety Report 13092066 (Version 1)
Quarter: 2017Q1

REPORT INFORMATION
  Report Type: Spontaneous
  Country: US (occurrence: US)
  Receive Date: 20170105
  Receipt Date: 20170105
  Transmission Date: 20170428
  Serious: Yes (Other)
  Sender: FDA-Public Use
  Company Number: None

PATIENT
  Age: 59 Year
  Sex: Female
  Weight: 72.5 kg

DRUGS (1)
  1. VANCOMYCIN [Suspect]
     Active Substance: VANCOMYCIN
     Indication: CELLULITIS STAPHYLOCOCCAL
     Route: 042
     Dates: start: 20161012, end: 20161024

REACTIONS (4)
  - Toxicity to various agents [None]
  - Generalised oedema [None]
  - Acute kidney injury [None]
  - Renal failure [None]

NARRATIVE: CASE EVENT DATE: 20161020
